FAERS Safety Report 8779636 (Version 2)
Quarter: 2012Q4

REPORT INFORMATION
  Report Type: Report from Study
  Country: US (occurrence: US)
  Receive Date: 20120912
  Receipt Date: 20120914
  Transmission Date: 20130627
  Serious: Yes (Life-Threatening, Hospitalization)
  Sender: FDA-Public Use
  Company Number: US-JNJFOC-20120903844

PATIENT
  Age: 16 Year
  Sex: Female
  Weight: 52.5 kg

DRUGS (18)
  1. INFLIXIMAB, RECOMBINANT [Suspect]
     Indication: INFLAMMATORY BOWEL DISEASE
     Route: 042
     Dates: start: 20110518
  2. POTASSIUM CHLORIDE [Suspect]
     Indication: PRODUCT USED FOR UNKNOWN INDICATION
  3. LOESTRIN FE [Concomitant]
     Indication: ORAL CONTRACEPTION
     Route: 048
  4. VICODIN [Concomitant]
  5. GABAPENTIN [Concomitant]
  6. LOPERAMIDE [Concomitant]
  7. PSYLLIUM HUSK [Concomitant]
  8. ZOLOFT [Concomitant]
  9. NEOMYCIN [Concomitant]
  10. OMEPRAZOLE [Concomitant]
  11. NIFEREX-FORTE [Concomitant]
  12. ACETAMINOPHEN [Concomitant]
  13. 6-MERCAPTOPURINE [Concomitant]
  14. ANTIBIOTICS FOR IBD [Concomitant]
     Indication: INFLAMMATORY BOWEL DISEASE
  15. DILAUDID [Concomitant]
  16. ZOFRAN [Concomitant]
  17. ATIVAN [Concomitant]
  18. TORADOL [Concomitant]

REACTIONS (5)
  - Colitis ulcerative [Recovered/Resolved with Sequelae]
  - Hyperkalaemia [Recovered/Resolved]
  - Dehydration [Recovered/Resolved]
  - Small intestinal obstruction [Recovered/Resolved with Sequelae]
  - Septic shock [Recovered/Resolved with Sequelae]
